FAERS Safety Report 12561576 (Version 3)
Quarter: 2016Q3

REPORT INFORMATION
  Report Type: Spontaneous
  Country: GR (occurrence: GR)
  Receive Date: 20160715
  Receipt Date: 20160729
  Transmission Date: 20161109
  Serious: Yes (Hospitalization, Other)
  Sender: FDA-Public Use
  Company Number: GR-SA-2016SA124473

PATIENT
  Age: 84 Year
  Sex: Male

DRUGS (4)
  1. PLAVIX [Suspect]
     Active Substance: CLOPIDOGREL BISULFATE
     Route: 048
     Dates: start: 2006, end: 20160603
  2. LASIX [Concomitant]
     Active Substance: FUROSEMIDE
     Route: 065
  3. DEPON [Suspect]
     Active Substance: ACETAMINOPHEN
     Route: 065
  4. OLARTAN [Concomitant]
     Route: 065

REACTIONS (4)
  - Pulmonary oedema [Unknown]
  - Gastric haemorrhage [Unknown]
  - Pallor [Unknown]
  - Faeces discoloured [Unknown]

NARRATIVE: CASE EVENT DATE: 2014
